FAERS Safety Report 21437110 (Version 2)
Quarter: 2022Q4

REPORT INFORMATION
  Report Type: Report from Study
  Country: DK (occurrence: None)
  Receive Date: 20221010
  Receipt Date: 20221017
  Transmission Date: 20230113
  Serious: Yes (Hospitalization)
  Sender: FDA-Public Use
  Company Number: DK-ROCHE-3194066

PATIENT
  Age: 55 Year
  Sex: Female
  Weight: 72.5 kg

DRUGS (38)
  1. CARBOPLATIN [Suspect]
     Active Substance: CARBOPLATIN
     Indication: Malignant neoplasm of unknown primary site
     Dosage: ON 04/JUL/2022 DOSE OF LAST DRUG 1 ADMINISTERED PRIOR TO SAE/AESI ONSET 504 MG
     Route: 042
     Dates: start: 20220520
  2. CARBOPLATIN [Suspect]
     Active Substance: CARBOPLATIN
     Dosage: ON 28/SEP/2022 DOSE OF LAST DRUG ADMINISTERED PRIOR TO SAE/AESI ONSET 505 MG
     Route: 042
     Dates: start: 20220804
  3. PACLITAXEL [Suspect]
     Active Substance: PACLITAXEL
     Indication: Malignant neoplasm of unknown primary site
     Dosage: ON 04/JUL/2022 DOSE OF LAST DRUG 1 ADMINISTERED PRIOR TO SAE/AESI ONSET 315 MG
     Route: 042
     Dates: start: 20220520
  4. PACLITAXEL [Suspect]
     Active Substance: PACLITAXEL
     Dosage: ON 28/SEP/2022 DOSE OF LAST DRUG ADMINISTERED PRIOR TO SAE/AESI ONSET 259 MG
     Route: 042
     Dates: start: 20220804
  5. ATEZOLIZUMAB [Suspect]
     Active Substance: ATEZOLIZUMAB
     Indication: Malignant neoplasm of unknown primary site
     Dosage: ON 04/AUG/2022 DOSE OF LAST DRUG ADMINISTERED PRIOR TO SAE/AESI ONSET 1200 MG
     Route: 041
     Dates: start: 20220804
  6. DOMPERIDONE [Concomitant]
     Active Substance: DOMPERIDONE
     Route: 048
     Dates: start: 20220519, end: 20220522
  7. CLEMASTINE [Concomitant]
     Active Substance: CLEMASTINE
     Route: 042
     Dates: start: 20220520, end: 20220520
  8. CLEMASTINE [Concomitant]
     Active Substance: CLEMASTINE
     Route: 042
     Dates: start: 20220613, end: 20220613
  9. CLEMASTINE [Concomitant]
     Active Substance: CLEMASTINE
     Route: 042
     Dates: start: 20220704, end: 20220704
  10. CLEMASTINE [Concomitant]
     Active Substance: CLEMASTINE
     Route: 042
     Dates: start: 20220804, end: 20220804
  11. SOLU-MEDROL [Concomitant]
     Active Substance: METHYLPREDNISOLONE SODIUM SUCCINATE
     Route: 042
     Dates: start: 20220520, end: 20220520
  12. SOLU-MEDROL [Concomitant]
     Active Substance: METHYLPREDNISOLONE SODIUM SUCCINATE
     Route: 042
     Dates: start: 20220613, end: 20220613
  13. SOLU-MEDROL [Concomitant]
     Active Substance: METHYLPREDNISOLONE SODIUM SUCCINATE
     Route: 042
     Dates: start: 20220704, end: 20220704
  14. SOLU-MEDROL [Concomitant]
     Active Substance: METHYLPREDNISOLONE SODIUM SUCCINATE
     Route: 042
     Dates: start: 20220804, end: 20220804
  15. SOLU-MEDROL [Concomitant]
     Active Substance: METHYLPREDNISOLONE SODIUM SUCCINATE
     Route: 042
     Dates: start: 20220822, end: 20220826
  16. PALONOSETRON [Concomitant]
     Active Substance: PALONOSETRON
     Route: 048
     Dates: start: 20220520, end: 20220520
  17. PALONOSETRON [Concomitant]
     Active Substance: PALONOSETRON
     Route: 048
     Dates: start: 20220613, end: 20220613
  18. PALONOSETRON [Concomitant]
     Active Substance: PALONOSETRON
     Route: 048
     Dates: start: 20220704, end: 20220704
  19. PALONOSETRON [Concomitant]
     Active Substance: PALONOSETRON
     Route: 048
     Dates: start: 20220804, end: 20220804
  20. PREDNISOLONE [Concomitant]
     Active Substance: PREDNISOLONE
     Route: 048
     Dates: start: 20220521, end: 20220522
  21. PREDNISOLONE [Concomitant]
     Active Substance: PREDNISOLONE
     Route: 048
     Dates: start: 20220705, end: 20220706
  22. PREDNISOLONE [Concomitant]
     Active Substance: PREDNISOLONE
     Route: 048
     Dates: start: 20220825, end: 20220827
  23. PREDNISOLONE [Concomitant]
     Active Substance: PREDNISOLONE
     Route: 048
     Dates: start: 20220828, end: 20220830
  24. PREDNISOLONE [Concomitant]
     Active Substance: PREDNISOLONE
     Route: 048
     Dates: start: 20220831, end: 20220902
  25. PREDNISOLONE [Concomitant]
     Active Substance: PREDNISOLONE
     Route: 048
     Dates: start: 20220903, end: 20220905
  26. PREDNISOLONE [Concomitant]
     Active Substance: PREDNISOLONE
     Route: 048
     Dates: start: 20220908, end: 20220910
  27. PREDNISOLONE [Concomitant]
     Active Substance: PREDNISOLONE
     Route: 048
     Dates: start: 20220911, end: 20220915
  28. PREDNISOLONE [Concomitant]
     Active Substance: PREDNISOLONE
     Route: 048
     Dates: start: 20221002
  29. POLYETHYLENE GLYCOLS [Concomitant]
     Active Substance: POLYETHYLENE GLYCOLS
     Route: 048
     Dates: start: 20220728
  30. IBUPROFEN [Concomitant]
     Active Substance: IBUPROFEN
     Route: 048
     Dates: start: 20220818
  31. MEROPENEM [Concomitant]
     Active Substance: MEROPENEM
     Route: 042
     Dates: start: 20220820, end: 20220823
  32. ACYCLOVIR [Concomitant]
     Active Substance: ACYCLOVIR
     Route: 042
     Dates: start: 20220820, end: 20220823
  33. THIAMINE [Concomitant]
     Active Substance: THIAMINE
     Route: 042
     Dates: start: 20220820, end: 20220823
  34. THIAMINE [Concomitant]
     Active Substance: THIAMINE
     Route: 048
     Dates: start: 20220823
  35. VITAMIN B COMPLEX [Concomitant]
     Active Substance: CYANOCOBALAMIN\DEXPANTHENOL\NIACINAMIDE\PYRIDOXINE HYDROCHLORIDE\RIBOFLAVIN 5^-PHOSPHATE SODIUM\THIA
     Route: 042
     Dates: start: 20220820, end: 20220823
  36. MORPHINE [Concomitant]
     Active Substance: MORPHINE
     Route: 048
     Dates: start: 20220822
  37. LORAZEPAM [Concomitant]
     Active Substance: LORAZEPAM
     Route: 048
     Dates: start: 20221002
  38. PANTOPRAZOLE SODIUM [Concomitant]
     Active Substance: PANTOPRAZOLE SODIUM
     Route: 048
     Dates: start: 20220825

REACTIONS (1)
  - Dizziness [Not Recovered/Not Resolved]

NARRATIVE: CASE EVENT DATE: 20221002
